FAERS Safety Report 5805266-9 (Version None)
Quarter: 2008Q3

REPORT INFORMATION
  Report Type: 
  Country: None (occurrence: None)
  Receive Date: 20080709
  Receipt Date: 20080702
  Transmission Date: 20090109
  Serious: Yes (Disabling)
  Sender: FDA-Public Use
  Company Number: JP-ALLERGAN-0807506US

PATIENT
  Sex: Male

DRUGS (4)
  1. BOTOX [Suspect]
     Indication: FACIAL SPASM
     Dosage: 4 UNITS, SINGLE
     Route: 030
     Dates: start: 20080604, end: 20080604
  2. FASTIC [Concomitant]
     Dosage: 270 MG, QD
     Route: 048
     Dates: start: 20051207
  3. MELBIN [Concomitant]
     Dosage: 500 MG, QD
     Route: 048
     Dates: start: 20051207
  4. GLUCOBAY [Concomitant]
     Dosage: 150 MG, QD
     Route: 048
     Dates: start: 20070530

REACTIONS (1)
  - VISUAL ACUITY REDUCED [None]
